FAERS Safety Report 8094151-0 (Version None)
Quarter: 2012Q1

REPORT INFORMATION
  Report Type: 
  Country: None (occurrence: None)
  Receive Date: 20120130
  Receipt Date: 20120130
  Transmission Date: 20120608
  Serious: Yes (Life-Threatening)
  Sender: FDA-Public Use
  Company Number: None

PATIENT
  Age: 55 Year
  Sex: Female
  Weight: 81.646 kg

DRUGS (2)
  1. FENTANYL-100 [Suspect]
     Indication: LYME DISEASE
     Dosage: 25 MUG/H
     Route: 062
     Dates: start: 20120124, end: 20120125
  2. FENTANYL-100 [Suspect]
     Indication: ARTHRALGIA
     Dosage: 25 MUG/H
     Route: 062
     Dates: start: 20120124, end: 20120125

REACTIONS (7)
  - DEPRESSED LEVEL OF CONSCIOUSNESS [None]
  - INCORRECT DOSE ADMINISTERED [None]
  - HEADACHE [None]
  - SOMNOLENCE [None]
  - PRODUCT QUALITY ISSUE [None]
  - NAUSEA [None]
  - ABDOMINAL PAIN UPPER [None]
